FAERS Safety Report 5318973-1 (Version None)
Quarter: 2007Q2

REPORT INFORMATION
  Report Type: 
  Country: None (occurrence: None)
  Receive Date: 20070508
  Receipt Date: 20070503
  Transmission Date: 20071010
  Serious: Yes (Death, Hospitalization)
  Sender: FDA-Public Use
  Company Number: US-BRISTOL-MYERS SQUIBB COMPANY-13768908

PATIENT
  Age: 68 Year
  Sex: Female

DRUGS (5)
  1. DASATINIB [Suspect]
     Indication: POLYCYTHAEMIA VERA
     Dates: start: 20070501, end: 20070502
  2. HYDREA [Concomitant]
     Indication: POLYCYTHAEMIA
  3. COUMADIN [Concomitant]
     Dates: start: 20070305, end: 20070502
  4. FOLIC ACID [Concomitant]
     Dates: start: 20070305, end: 20070502
  5. VITAMIN B-12 [Concomitant]
     Dates: start: 20070305, end: 20070502

REACTIONS (6)
  - ACUTE RESPIRATORY DISTRESS SYNDROME [None]
  - DYSPNOEA [None]
  - LUNG INFILTRATION [None]
  - NAUSEA [None]
  - VOMITING [None]
  - WHITE BLOOD CELL COUNT INCREASED [None]
